FAERS Safety Report 7921906-2 (Version None)
Quarter: 2011Q4

REPORT INFORMATION
  Report Type: 
  Country: None (occurrence: None)
  Receive Date: 20111117
  Receipt Date: 20111114
  Transmission Date: 20120403
  Serious: Yes (Other)
  Sender: FDA-Public Use
  Company Number: US-BAYER-2011-110928

PATIENT
  Age: 39 Year
  Sex: Female

DRUGS (1)
  1. AVELOX [Suspect]
     Indication: INFECTION
     Dosage: 400 MG, QD
     Route: 048
     Dates: start: 20111101, end: 20111101

REACTIONS (4)
  - BIPOLAR I DISORDER [None]
  - TREMOR [None]
  - NERVOUS SYSTEM DISORDER [None]
  - HYPERHIDROSIS [None]
